FAERS Safety Report 4760569-4 (Version None)
Quarter: 2005Q3

REPORT INFORMATION
  Report Type: 
  Country: None (occurrence: None)
  Receive Date: 20050826
  Receipt Date: 20050224
  Transmission Date: 20060218
  Serious: Yes (Death)
  Sender: FDA-Public Use
  Company Number: USA-2005-0019068

PATIENT
  Age: 52 Year
  Sex: Female
  Weight: 81.6 kg

DRUGS (5)
  1. OXYCONTIN [Suspect]
     Indication: PAIN
     Dosage: 10 MG, Q12H
  2. OXYCODONE HCL [Suspect]
     Dosage: 5 MG, Q2-3H
  3. ALPRAZOLAM [Suspect]
  4. DOXEPIN HCL [Suspect]
  5. OXYMORPHONE HYDROCHLORIDE [Suspect]

REACTIONS (7)
  - ACCIDENTAL OVERDOSE [None]
  - CARDIAC ARREST [None]
  - COMA [None]
  - HYPOXIA [None]
  - INSOMNIA [None]
  - PAIN [None]
  - RESPIRATORY DEPRESSION [None]
